FAERS Safety Report 10528443 (Version 2)
Quarter: 2015Q3

REPORT INFORMATION
  Report Type: Spontaneous
  Country: US (occurrence: US)
  Receive Date: 20141020
  Receipt Date: 20150708
  Transmission Date: 20151125
  Serious: Yes (Hospitalization, Other)
  Sender: FDA-Public Use
  Company Number: US-PFIZER INC-2014284501

PATIENT
  Age: 81 Year
  Sex: Male

DRUGS (8)
  1. LISINOPRIL. [Concomitant]
     Active Substance: LISINOPRIL
     Dosage: UNK
  2. DILTIAZEM [Concomitant]
     Active Substance: DILTIAZEM
     Dosage: UNK
  3. VIAGRA [Suspect]
     Active Substance: SILDENAFIL CITRATE
     Indication: ERECTILE DYSFUNCTION
     Dosage: HALF OF 100 MG, AS NEEDED (30MIN BEFORE INTERCOURSE)
     Route: 048
     Dates: start: 201407, end: 201407
  4. ALLOPURINOL. [Concomitant]
     Active Substance: ALLOPURINOL
     Dosage: UNK
  5. TRAMADOL. [Concomitant]
     Active Substance: TRAMADOL
     Dosage: UNK
  6. DOCUSATE [Concomitant]
     Active Substance: DOCUSATE
     Dosage: UNK
  7. ATORVASTATIN [Concomitant]
     Active Substance: ATORVASTATIN
     Dosage: UNK
  8. ASPIRIN. [Concomitant]
     Active Substance: ASPIRIN
     Dosage: UNK

REACTIONS (15)
  - Generalised oedema [Unknown]
  - Blood albumin abnormal [Unknown]
  - Hyperkalaemia [Unknown]
  - Face oedema [Unknown]
  - Glomerulonephritis minimal lesion [Unknown]
  - Acute kidney injury [Unknown]
  - Blood urine present [Unknown]
  - Proteinuria [Unknown]
  - Blood urea increased [Unknown]
  - Blood creatinine increased [Unknown]
  - Weight increased [Unknown]
  - Oedema peripheral [Unknown]
  - Renal failure [Unknown]
  - Condition aggravated [Unknown]
  - Tubulointerstitial nephritis [Unknown]

NARRATIVE: CASE EVENT DATE: 2014
